FAERS Safety Report 8556180-X (Version None)
Quarter: 2012Q3

REPORT INFORMATION
  Report Type: 
  Country: None (occurrence: None)
  Receive Date: 20120801
  Receipt Date: 20120723
  Transmission Date: 20120928
  Serious: Yes (Other)
  Sender: FDA-Public Use
  Company Number: US-SANOFI-AVENTIS-2012SA052449

PATIENT
  Age: 77 Year
  Sex: Male
  Weight: 183 kg

DRUGS (2)
  1. PROTONIX [Concomitant]
  2. PLAVIX [Suspect]
     Route: 048

REACTIONS (3)
  - GASTROOESOPHAGEAL REFLUX DISEASE [None]
  - CONTUSION [None]
  - DYSPHAGIA [None]
